FAERS Safety Report 24011271 (Version 2)
Quarter: 2024Q2

REPORT INFORMATION
  Report Type: Report from Study
  Country: FR (occurrence: FR)
  Receive Date: 20240625
  Receipt Date: 20240628
  Transmission Date: 20240716
  Serious: Yes (Other)
  Sender: FDA-Public Use
  Company Number: FR-ALNYLAM PHARMACEUTICALS, INC.-ALN-2024-003502

PATIENT

DRUGS (2)
  1. AMVUTTRA [Suspect]
     Active Substance: VUTRISIRAN
     Indication: Acquired ATTR amyloidosis
     Dosage: UNK
     Route: 065
     Dates: start: 2023, end: 2023
  2. AMVUTTRA [Suspect]
     Active Substance: VUTRISIRAN
     Dosage: UNK
     Route: 065
     Dates: start: 20240412, end: 20240412

REACTIONS (10)
  - Ocular melanoma [Unknown]
  - Thinking abnormal [Unknown]
  - Fatigue [Unknown]
  - Pain [Unknown]
  - Apathy [Unknown]
  - Asthenia [Unknown]
  - Dyspnoea [Unknown]
  - Oedema peripheral [Unknown]
  - Visual impairment [Unknown]
  - Melanocytic naevus [Unknown]

NARRATIVE: CASE EVENT DATE: 20240101
